FAERS Safety Report 8882367 (Version 1)
Quarter: 2012Q4

REPORT INFORMATION
  Report Type: 
  Country: BR (occurrence: BR)
  Receive Date: 20121102
  Receipt Date: 20121102
  Transmission Date: 20130627
  Serious: Yes (Death, Other)
  Sender: FDA-Public Use
  Company Number: PHHY2012BR099697

PATIENT
  Sex: Female

DRUGS (4)
  1. DIOVAN [Suspect]
     Indication: HYPERTENSION
     Dosage: 1  tablet a day
     Route: 048
  2. BAMIFIX [Concomitant]
     Indication: LUNG DISORDER
     Dosage: 2 tablets daily
     Route: 048
  3. INSULIN [Concomitant]
     Indication: DIABETES MELLITUS
     Dosage: 10 units at morning and 15 units at afternoon
  4. SIMVASTATIN [Concomitant]
     Dosage: 1 tablet a day
     Route: 048

REACTIONS (1)
  - Cardio-respiratory arrest [Fatal]
